FAERS Safety Report 7415247-X (Version None)
Quarter: 2011Q2

REPORT INFORMATION
  Report Type: 
  Country: None (occurrence: None)
  Receive Date: 20110414
  Receipt Date: 20110412
  Transmission Date: 20111010
  Serious: Yes (Death)
  Sender: FDA-Public Use
  Company Number: PHHO2011DE06158

PATIENT
  Sex: Female
  Weight: 79 kg

DRUGS (13)
  1. MIRTAZAPINE [Concomitant]
  2. FTY [Suspect]
     Dosage: NO TREATMENT
     Dates: start: 20100908, end: 20101012
  3. FTY [Suspect]
     Dosage: 0.5 MG, QD
     Route: 048
     Dates: start: 20101013
  4. PK-MERZ [Concomitant]
  5. FTY [Suspect]
     Indication: MULTIPLE SCLEROSIS
     Dosage: 0.5 MG, QD
     Route: 048
     Dates: start: 20100407, end: 20100907
  6. SIMVAR [Concomitant]
  7. SIMVASTATIN [Concomitant]
  8. URBASON [Concomitant]
  9. LEVOTHYROXINE SODIUM [Concomitant]
  10. LYRICA [Concomitant]
  11. NEURONTIN [Concomitant]
  12. LAXOBERAL [Concomitant]
  13. LOSARTAN [Concomitant]

REACTIONS (1)
  - MYOCARDIAL INFARCTION [None]
